FAERS Safety Report 4831525-2 (Version None)
Quarter: 2005Q4

REPORT INFORMATION
  Report Type: 
  Country: None (occurrence: None)
  Receive Date: 20051114
  Receipt Date: 20051101
  Transmission Date: 20060501
  Serious: Yes (Hospitalization, Disabling, Other)
  Sender: FDA-Public Use
  Company Number: 2005129255

PATIENT
  Age: 69 Year
  Sex: Male
  Weight: 110 kg

DRUGS (12)
  1. NEURONTIN [Suspect]
     Indication: NEUROPATHY PERIPHERAL
     Dosage: 1200 MG (600 MG, 2 IN 1 D), ORAL
     Route: 048
  2. NEURONTIN [Suspect]
     Indication: PAIN
     Dosage: 1200 MG (600 MG, 2 IN 1 D), ORAL
     Route: 048
  3. SIMVASTATIN [Concomitant]
  4. RITALIN - SLOW RELEASE (METHYLPHENIDATE HYDROCHLORIDE) [Concomitant]
  5. ALL OTHER THERAPEUTIC PRODUCTS (ALL OTHER THERAPEUTIC PRODUCTS) [Concomitant]
  6. M-ESLON (MORPHINE SULFATE) [Concomitant]
  7. ACETYLSALICYLIC ACID SRT [Concomitant]
  8. BETALOC - SLOW RELEASE (METOPROLOL TARTRATE) [Concomitant]
  9. DURIDE (ISOSORBIDE MONONITRATE) [Concomitant]
  10. CILAZAPRIL (CILAZAPRIL) [Concomitant]
  11. BISACODYL (BISACODYL) [Concomitant]
  12. EPILIM (VALPROATE SODIUM) [Concomitant]

REACTIONS (4)
  - FALL [None]
  - HYPOTENSION [None]
  - MONOPLEGIA [None]
  - TREMOR [None]
